FAERS Safety Report 9512190 (Version 1)
Quarter: 2013Q3

REPORT INFORMATION
  Report Type: Spontaneous
  Country: VE (occurrence: None)
  Receive Date: 20130906
  Receipt Date: 20130906
  Transmission Date: 20140515
  Serious: Yes (Hospitalization)
  Sender: FDA-Public Use
  Company Number: VAL_02712_2013

PATIENT
  Age: 42 Year
  Sex: Female

DRUGS (3)
  1. LOPRESOR [Suspect]
     Indication: HYPERTENSION
     Route: 048
     Dates: start: 200807
  2. ASPIRINA [Concomitant]
  3. ADALAT [Concomitant]

REACTIONS (3)
  - Product distribution issue [None]
  - Blood pressure increased [None]
  - Therapy cessation [None]
